FAERS Safety Report 9338729 (Version 3)
Quarter: 2013Q3

REPORT INFORMATION
  Report Type: Report from Study
  Country: FR (occurrence: FR)
  Receive Date: 20130610
  Receipt Date: 20130823
  Transmission Date: 20140515
  Serious: Yes (Death, Life-Threatening)
  Sender: FDA-Public Use
  Company Number: FR-INCYTE CORPORATION-2013IN001127

PATIENT
  Age: 51 Year
  Sex: Male
  Weight: 61 kg

DRUGS (9)
  1. INC424 [Suspect]
     Indication: MYELOFIBROSIS
     Dosage: 15 MG, BID
     Route: 048
     Dates: start: 20121212, end: 20130210
  2. INC424 [Suspect]
     Dosage: 20 MG, BID
     Route: 048
     Dates: start: 20130211, end: 20130408
  3. INC424 [Suspect]
     Dosage: 15 MG, BID
     Route: 048
     Dates: start: 20130409, end: 20130411
  4. INC424 [Suspect]
     Dosage: 10 MG, BID
     Route: 048
     Dates: start: 20130412, end: 20130414
  5. INC424 [Suspect]
     Dosage: 5 MG, BID
     Route: 048
     Dates: start: 20130415, end: 20130418
  6. SOLUMEDROL [Concomitant]
     Dosage: UNK
     Dates: start: 20130419
  7. INNOHEP [Concomitant]
     Dosage: UNK
     Dates: start: 20121114
  8. KARDEGIC [Concomitant]
     Dosage: UNK
     Dates: start: 20130110
  9. DELURSAN [Concomitant]
     Dosage: UNK
     Dates: start: 20130406

REACTIONS (5)
  - Bone marrow failure [Unknown]
  - Acute respiratory distress syndrome [Fatal]
  - Acute graft versus host disease [Fatal]
  - Candida sepsis [Recovered/Resolved]
  - Multi-organ failure [None]
